FAERS Safety Report 24243537 (Version 1)
Quarter: 2024Q3

REPORT INFORMATION
  Report Type: Spontaneous
  Country: US (occurrence: US)
  Receive Date: 20240823
  Receipt Date: 20240823
  Transmission Date: 20241017
  Serious: No
  Sender: PFIZER
  Company Number: US-PFIZER INC-202400241070

PATIENT
  Age: 63 Year
  Sex: Female

DRUGS (2)
  1. LEVOFLOXACIN [Suspect]
     Active Substance: LEVOFLOXACIN
  2. LEVAQUIN [Suspect]
     Active Substance: LEVOFLOXACIN

REACTIONS (5)
  - Contraindicated product administered [Unknown]
  - Tendon pain [Unknown]
  - Pruritus [Unknown]
  - Seasonal allergy [Unknown]
  - Disease progression [Unknown]

NARRATIVE: CASE EVENT DATE: 20150325
